FAERS Safety Report 16576514 (Version 1)
Quarter: 2019Q3

REPORT INFORMATION
  Report Type: Other
  Country: US (occurrence: US)
  Receive Date: 20190716
  Receipt Date: 20190716
  Transmission Date: 20191004
  Serious: No
  Sender: FDA-Public Use
  Company Number: US-SWEDISH ORPHAN BIOVITRUM-2018US1003

PATIENT
  Sex: Female

DRUGS (7)
  1. REXULTI [Concomitant]
     Active Substance: BREXPIPRAZOLE
  2. PRILOSEC [Concomitant]
     Active Substance: OMEPRAZOLE MAGNESIUM
  3. VITAMIN D [Concomitant]
     Active Substance: VITAMIN D NOS
  4. LORATADINE. [Concomitant]
     Active Substance: LORATADINE
  5. EFFEXOR [Concomitant]
     Active Substance: VENLAFAXINE HYDROCHLORIDE
  6. ORFADIN [Suspect]
     Active Substance: NITISINONE
     Indication: TYROSINAEMIA
     Route: 048
  7. BUCLIZINE [Concomitant]
     Active Substance: BUCLIZINE

REACTIONS (1)
  - Fungal infection [Recovered/Resolved]

NARRATIVE: CASE EVENT DATE: 2018
